FAERS Safety Report 16207556 (Version 1)
Quarter: 2019Q2

REPORT INFORMATION
  Report Type: Spontaneous
  Country: US (occurrence: US)
  Receive Date: 20190313
  Receipt Date: 20190313
  Transmission Date: 20190711
  Serious: Yes (Hospitalization)
  Sender: FDA-Public Use
  Company Number: None

PATIENT
  Age: 59 Year
  Sex: Female

DRUGS (1)
  1. ORENCIA [Suspect]
     Active Substance: ABATACEPT
     Dates: start: 201811

REACTIONS (4)
  - Post procedural complication [None]
  - Intestinal fistula [None]
  - Intestinal perforation [None]
  - Wound infection [None]

NARRATIVE: CASE EVENT DATE: 20190301
